FAERS Safety Report 8367448-4 (Version None)
Quarter: 2012Q2

REPORT INFORMATION
  Report Type: 
  Country: None (occurrence: None)
  Receive Date: 20120517
  Receipt Date: 20120209
  Transmission Date: 20120825
  Serious: No
  Sender: FDA-Public Use
  Company Number: US-GLAXOSMITHKLINE-A0965278A

PATIENT
  Sex: Female

DRUGS (2)
  1. VOTRIENT [Suspect]
     Indication: OFF LABEL USE
     Dosage: 200MG FOUR TIMES PER DAY
     Route: 048
  2. NO CONCURRENT MEDICATION [Concomitant]

REACTIONS (4)
  - ASTHENIA [None]
  - ARTHRALGIA [None]
  - DIZZINESS [None]
  - ABDOMINAL PAIN [None]
